FAERS Safety Report 4583332-6 (Version None)
Quarter: 2005Q1

REPORT INFORMATION
  Report Type: 
  Country: None (occurrence: None)
  Receive Date: 20050125
  Receipt Date: 20041124
  Transmission Date: 20050727
  Serious: No
  Sender: FDA-Public Use
  Company Number: USA040156682

PATIENT
  Age: 66 Year
  Sex: Female
  Weight: 48 kg

DRUGS (6)
  1. FORTEO [Suspect]
     Indication: OSTEOPOROSIS
     Dosage: 20 UG/1 DAY
     Dates: start: 20031101
  2. TRAZADONE (TRAZODONE) [Concomitant]
  3. XANAX [Concomitant]
  4. ATROVENT [Concomitant]
  5. ALBUTEROL [Concomitant]
  6. CALCIUM GLUCONATE [Concomitant]

REACTIONS (13)
  - ANAEMIA [None]
  - ANGIOGRAM [None]
  - ARTHRALGIA [None]
  - ASTHENIA [None]
  - CHEST DISCOMFORT [None]
  - CHEST PAIN [None]
  - FATIGUE [None]
  - HAEMORRHAGE [None]
  - HYPERSOMNIA [None]
  - PAIN IN EXTREMITY [None]
  - RASH [None]
  - SKIN HYPOPIGMENTATION [None]
  - WEIGHT DECREASED [None]
